FAERS Safety Report 7541789-2 (Version None)
Quarter: 2011Q2

REPORT INFORMATION
  Report Type: 
  Country: None (occurrence: None)
  Receive Date: 20110613
  Receipt Date: 20110605
  Transmission Date: 20111010
  Serious: Yes (Other)
  Sender: FDA-Public Use
  Company Number: GB-JNJFOC-20100806180

PATIENT
  Sex: Female

DRUGS (1)
  1. RISPERDAL CONSTA [Suspect]
     Indication: ILL-DEFINED DISORDER
     Route: 030
     Dates: start: 20040101

REACTIONS (8)
  - HAIR DISORDER [None]
  - WEIGHT INCREASED [None]
  - HAIR GROWTH ABNORMAL [None]
  - HALLUCINATION, AUDITORY [None]
  - INCONTINENCE [None]
  - SKIN DISCOLOURATION [None]
  - MENORRHAGIA [None]
  - FLATULENCE [None]
